FAERS Safety Report 14684559 (Version 1)
Quarter: 2018Q1

REPORT INFORMATION
  Report Type: Spontaneous
  Country: US (occurrence: US)
  Receive Date: 20180327
  Receipt Date: 20180327
  Transmission Date: 20180509
  Serious: Yes (Other)
  Sender: FDA-Public Use
  Company Number: US-RECKITT BENCKISER HEALTHCARE INT LIMITED-RB-83517-2018

PATIENT
  Age: 63 Year
  Sex: Female

DRUGS (1)
  1. DELSYM [Suspect]
     Active Substance: DEXTROMETHORPHAN
     Indication: PRODUCT USED FOR UNKNOWN INDICATION
     Dosage: 1 SIP ONE TIME
     Route: 048
     Dates: start: 20180312

REACTIONS (9)
  - Loss of consciousness [Recovered/Resolved]
  - Confusional state [Unknown]
  - Mouth swelling [Unknown]
  - Nausea [Unknown]
  - Balance disorder [Not Recovered/Not Resolved]
  - Swollen tongue [Unknown]
  - Malaise [Not Recovered/Not Resolved]
  - Vomiting [Unknown]
  - Diarrhoea [Unknown]

NARRATIVE: CASE EVENT DATE: 20180312
